FAERS Safety Report 6171072-1 (Version None)
Quarter: 2009Q2

REPORT INFORMATION
  Report Type: 
  Country: None (occurrence: None)
  Receive Date: 20090429
  Receipt Date: 20090416
  Transmission Date: 20091009
  Serious: Yes (Other)
  Sender: FDA-Public Use
  Company Number: PHHY2009AU14408

PATIENT
  Age: 45 Year
  Sex: Male

DRUGS (1)
  1. CYCLOSPORINE [Suspect]
     Dosage: UNK

REACTIONS (1)
  - NEUROPATHY PERIPHERAL [None]
